FAERS Safety Report 7158718-6 (Version None)
Quarter: 2010Q4

REPORT INFORMATION
  Report Type: 
  Country: None (occurrence: None)
  Receive Date: 20101129
  Receipt Date: 20101119
  Transmission Date: 20110411
  Serious: Yes (Hospitalization, Other)
  Sender: FDA-Public Use
  Company Number: US-ACCORD-006689

PATIENT
  Age: 45 Year
  Sex: Male

DRUGS (8)
  1. SIMVASTATIN [Suspect]
     Indication: PRODUCT USED FOR UNKNOWN INDICATION
     Dosage: 80.00-MG-
  2. CARVEDILOL [Concomitant]
  3. WARFARIN [Concomitant]
  4. SPIRONOLACTONE [Concomitant]
  5. FUROSEMIDE [Concomitant]
  6. ISOSORBIDE MONONITRATE [Concomitant]
  7. HYDRALAZINE [Concomitant]
  8. QUINAPRIL [Concomitant]

REACTIONS (10)
  - BLOOD CREATININE INCREASED [None]
  - BODY TEMPERATURE DECREASED [None]
  - CARDIAC ARREST [None]
  - DRUG INTERACTION [None]
  - ELECTROCARDIOGRAM ST SEGMENT ELEVATION [None]
  - ELECTROMECHANICAL DISSOCIATION [None]
  - RHABDOMYOLYSIS [None]
  - TROPONIN INCREASED [None]
  - URINE KETONE BODY PRESENT [None]
  - VENTRICULAR FIBRILLATION [None]
